FAERS Safety Report 17633433 (Version 2)
Quarter: 2021Q1

REPORT INFORMATION
  Report Type: Spontaneous
  Country: RU (occurrence: RU)
  Receive Date: 20200406
  Receipt Date: 20210129
  Transmission Date: 20210419
  Serious: Yes (Hospitalization, Other)
  Sender: FDA-Public Use
  Company Number: RU-VIIV HEALTHCARE LIMITED-RU2020EME053899

PATIENT
  Age: 51 Year
  Sex: Male
  Weight: 40 kg

DRUGS (10)
  1. COTRIMOXAZOLE [Suspect]
     Active Substance: SULFAMETHOXAZOLE\TRIMETHOPRIM
     Indication: PNEUMOCYSTIS JIROVECII PNEUMONIA
     Dosage: 1440 MG, TID
     Route: 042
     Dates: start: 20181017, end: 20181019
  2. AMOXICILLIN + CLAVULANIC ACID [Concomitant]
     Active Substance: AMOXICILLIN\CLAVULANIC ACID
     Indication: PRODUCT USED FOR UNKNOWN INDICATION
     Dosage: UNK
  3. TENOFOVIR DISOPROXIL FUMARATE. [Suspect]
     Active Substance: TENOFOVIR DISOPROXIL FUMARATE
     Indication: HIV INFECTION
     Dosage: UNK
     Dates: start: 20181012
  4. GANCICLOVIR. [Suspect]
     Active Substance: GANCICLOVIR
     Dosage: 400 MG
     Dates: start: 20181109
  5. GANCICLOVIR. [Suspect]
     Active Substance: GANCICLOVIR
     Indication: CYTOMEGALOVIRUS INFECTION
     Dosage: 250 MG, BID
     Dates: start: 20181027
  6. COTRIMOXAZOLE [Suspect]
     Active Substance: SULFAMETHOXAZOLE\TRIMETHOPRIM
     Dosage: 3360 MG
     Dates: start: 20181109
  7. ONDANSETRON [Concomitant]
     Active Substance: ONDANSETRON
     Indication: PROPHYLAXIS OF NAUSEA AND VOMITING
     Dosage: UNK
     Dates: start: 20181027
  8. LAMIVUDINE. [Suspect]
     Active Substance: LAMIVUDINE
     Indication: HIV INFECTION
     Dosage: UNK
     Dates: start: 20181012
  9. COTRIMOXAZOLE [Suspect]
     Active Substance: SULFAMETHOXAZOLE\TRIMETHOPRIM
     Dosage: 1440 MG, TID
     Route: 042
     Dates: start: 20181023
  10. LOPINAVIR+RITONAVIR [Suspect]
     Active Substance: LOPINAVIR\RITONAVIR
     Indication: HIV INFECTION
     Dosage: UNK
     Dates: start: 20181012

REACTIONS (28)
  - Cytomegalovirus infection [Recovered/Resolved]
  - Pancreatic disorder [Recovered/Resolved]
  - Condition aggravated [Recovered/Resolved]
  - Productive cough [Recovered/Resolved]
  - Pancytopenia [Recovered/Resolved]
  - Vomiting [Recovered/Resolved]
  - Food aversion [Recovered/Resolved]
  - Decreased appetite [Recovered/Resolved]
  - Toxicity to various agents [Unknown]
  - Nausea [Recovered/Resolved]
  - Lymphadenopathy mediastinal [Recovered/Resolved]
  - Liver disorder [Recovered/Resolved]
  - Myelosuppression [Recovered/Resolved]
  - Thrombocytopenia [Recovered/Resolved]
  - Anaemia [Recovered/Resolved]
  - Poisoning [Recovered/Resolved]
  - Asthenia [Recovered/Resolved]
  - Lung opacity [Recovered/Resolved]
  - Interstitial lung disease [Recovered/Resolved]
  - Neutropenia [Recovered/Resolved]
  - Pneumocystis jirovecii pneumonia [Recovered/Resolved]
  - Lung infiltration [Recovered/Resolved]
  - Drug intolerance [Unknown]
  - Disease progression [Recovered/Resolved]
  - Immune reconstitution inflammatory syndrome [Recovered/Resolved]
  - Dyspnoea [Recovered/Resolved]
  - Renal atrophy [Recovered/Resolved]
  - Pyrexia [Recovered/Resolved]

NARRATIVE: CASE EVENT DATE: 2018
